FAERS Safety Report 12940549 (Version 2)
Quarter: 2016Q4

REPORT INFORMATION
  Report Type: Spontaneous
  Country: JP (occurrence: JP)
  Receive Date: 20161115
  Receipt Date: 20161118
  Transmission Date: 20170207
  Serious: Yes (Other)
  Sender: FDA-Public Use
  Company Number: PHJP2016JP032445

PATIENT
  Age: 57 Year
  Sex: Male

DRUGS (1)
  1. CARBAMAZEPINE. [Suspect]
     Active Substance: CARBAMAZEPINE
     Indication: EPILEPSY
     Dosage: UNK
     Route: 048

REACTIONS (14)
  - Skin exfoliation [Unknown]
  - Lymphadenopathy [Unknown]
  - Ear infection staphylococcal [Unknown]
  - Papule [Recovering/Resolving]
  - Drug reaction with eosinophilia and systemic symptoms [Unknown]
  - Stomatitis [Unknown]
  - Swelling face [Unknown]
  - Pneumonia staphylococcal [Unknown]
  - Eating disorder [Unknown]
  - Pyrexia [Recovered/Resolved]
  - Human herpes virus 6 serology positive [Unknown]
  - Generalised erythema [Recovered/Resolved]
  - Rash pustular [Recovering/Resolving]
  - Eyelid disorder [Unknown]
